FAERS Safety Report 17052982 (Version 1)
Quarter: 2019Q4

REPORT INFORMATION
  Report Type: Spontaneous
  Country: US (occurrence: US)
  Receive Date: 20191120
  Receipt Date: 20191120
  Transmission Date: 20200122
  Serious: Yes (Other)
  Sender: FDA-Public Use
  Company Number: None

PATIENT
  Age: 24 Year
  Sex: Female
  Weight: 95.85 kg

DRUGS (5)
  1. LAMOTRIGINE 25MG [Suspect]
     Active Substance: LAMOTRIGINE
     Indication: BIPOLAR DISORDER
     Dosage: ?          QUANTITY:2 TABLET(S);?
     Route: 048
     Dates: start: 20191029, end: 20191118
  2. LEXAPRO [Concomitant]
     Active Substance: ESCITALOPRAM OXALATE
  3. 10MG MELATONIN FOR SLEEP [Concomitant]
  4. WELLBUTRIN 100MG 2X/DAY [Concomitant]
  5. SPIRONOLACTONE 100 MG FOR ACNE [Concomitant]

REACTIONS (5)
  - Swelling face [None]
  - Lymph node pain [None]
  - Dyspnoea [None]
  - Facial pain [None]
  - Ear pain [None]

NARRATIVE: CASE EVENT DATE: 20191117
